FAERS Safety Report 20016068 (Version 1)
Quarter: 2021Q4

REPORT INFORMATION
  Report Type: Spontaneous
  Country: US (occurrence: None)
  Receive Date: 20211102
  Receipt Date: 20211102
  Transmission Date: 20220304
  Serious: Yes (Death)
  Sender: FDA-Public Use
  Company Number: None

PATIENT
  Age: 2 Year
  Sex: Male
  Weight: 9.29 kg

DRUGS (1)
  1. SILDENAFIL [Suspect]
     Active Substance: SILDENAFIL
     Dosage: FREQUENCY : 3 TIMES A DAY;?OTHER ROUTE : J-TUBE;?
     Route: 050
     Dates: start: 20200714, end: 20210723

REACTIONS (1)
  - Death [None]

NARRATIVE: CASE EVENT DATE: 20211015
